FAERS Safety Report 5792286-6 (Version None)
Quarter: 2008Q2

REPORT INFORMATION
  Report Type: 
  Country: None (occurrence: None)
  Receive Date: 20080626
  Receipt Date: 20080619
  Transmission Date: 20081010
  Serious: Yes (Hospitalization, Disabling, Other)
  Sender: FDA-Public Use
  Company Number: US-ELI_LILLY_AND_COMPANY-US200806002160

PATIENT
  Sex: Female
  Weight: 100.68 kg

DRUGS (18)
  1. BYETTA [Suspect]
     Dosage: UNK, UNKNOWN
     Route: 065
     Dates: start: 20070101
  2. ANTI-DIABETICS [Concomitant]
     Indication: TYPE 2 DIABETES MELLITUS
     Dosage: 100 MG, DAILY (1/D)
     Route: 048
     Dates: start: 20070521, end: 20071029
  3. TRICOR [Concomitant]
     Dosage: UNK, UNKNOWN
     Route: 065
  4. PAXIL [Concomitant]
     Dosage: UNK, UNKNOWN
     Route: 065
  5. CRESTOR [Concomitant]
     Dosage: UNK, UNKNOWN
     Route: 065
  6. GLUCOPHAGE [Concomitant]
     Dosage: UNK, UNKNOWN
     Route: 065
  7. LANTUS [Concomitant]
     Dosage: UNK, UNKNOWN
     Route: 065
  8. TORSEMIDE [Concomitant]
     Dosage: UNK, UNKNOWN
     Route: 065
  9. DIOVAN [Concomitant]
     Dosage: UNK, UNKNOWN
     Route: 065
  10. CENTRUM SILVER [Concomitant]
     Dosage: UNK, UNKNOWN
     Route: 065
  11. NOVOLOG [Concomitant]
     Dosage: UNK, UNKNOWN
     Route: 065
  12. SYMLIN [Concomitant]
     Dosage: UNK, UNKNOWN
     Route: 065
  13. LYRICA [Concomitant]
     Dosage: UNK, UNKNOWN
     Route: 065
  14. OMEGA 3 [Concomitant]
     Dosage: UNK, UNKNOWN
     Route: 065
  15. SYNTHROID [Concomitant]
     Dosage: UNK, UNKNOWN
     Route: 065
  16. ASPIRIN [Concomitant]
     Dosage: UNK, UNKNOWN
     Route: 065
  17. THIOCTIC ACID [Concomitant]
     Dosage: UNK, UNKNOWN
     Route: 065
  18. COENZYME Q10 [Concomitant]
     Dosage: UNK, UNKNOWN
     Route: 065

REACTIONS (5)
  - APHTHOUS STOMATITIS [None]
  - CHOLECYSTITIS CHRONIC [None]
  - DIARRHOEA [None]
  - PANCREATITIS [None]
  - URTICARIA [None]
